FAERS Safety Report 25649896 (Version 1)
Quarter: 2025Q3

REPORT INFORMATION
  Report Type: Spontaneous
  Country: US (occurrence: US)
  Receive Date: 20250806
  Receipt Date: 20250806
  Transmission Date: 20251021
  Serious: No
  Sender: MYLAN
  Company Number: US-MYLANLABS-2025M1063050

PATIENT
  Age: 60 Year
  Sex: Female

DRUGS (4)
  1. FENTANYL TRANSDERMAL SYSTEM [Suspect]
     Active Substance: FENTANYL
     Indication: Colon cancer
     Dosage: 25 MICROGRAM, QH (PER HOUR, ONCE EVERY 48 HOURS)
     Dates: start: 20250723
  2. FENTANYL TRANSDERMAL SYSTEM [Suspect]
     Active Substance: FENTANYL
     Dosage: 25 MICROGRAM, QH (PER HOUR, ONCE EVERY 48 HOURS)
     Route: 062
     Dates: start: 20250723
  3. FENTANYL TRANSDERMAL SYSTEM [Suspect]
     Active Substance: FENTANYL
     Dosage: 25 MICROGRAM, QH (PER HOUR, ONCE EVERY 48 HOURS)
     Route: 062
     Dates: start: 20250723
  4. FENTANYL TRANSDERMAL SYSTEM [Suspect]
     Active Substance: FENTANYL
     Dosage: 25 MICROGRAM, QH (PER HOUR, ONCE EVERY 48 HOURS)
     Dates: start: 20250723

REACTIONS (2)
  - Off label use [Unknown]
  - Product commingling [Unknown]

NARRATIVE: CASE EVENT DATE: 20250723
